FAERS Safety Report 24812468 (Version 1)
Quarter: 2025Q1

REPORT INFORMATION
  Report Type: Spontaneous
  Country: CZ (occurrence: CZ)
  Receive Date: 20250106
  Receipt Date: 20250106
  Transmission Date: 20250409
  Serious: Yes (Life-Threatening, Hospitalization, Other)
  Sender: BRISTOL-MYERS SQUIBB COMPANY
  Company Number: None

PATIENT
  Age: 49 Year
  Sex: Male
  Weight: 108 kg

DRUGS (4)
  1. OPDIVO [Suspect]
     Active Substance: NIVOLUMAB
     Indication: Clear cell renal cell carcinoma
     Dosage: NIVOLUMAB 3MG/KG + IPILIMUMAB 1 MG/KG ONCE IN 21 DAYS; 4 CYCLES ADMINISTERED
     Route: 042
     Dates: start: 20240913, end: 20241113
  2. YERVOY [Suspect]
     Active Substance: IPILIMUMAB
     Indication: Clear cell renal cell carcinoma
     Dosage: NIVOLUMAB 3MG/KG + IPILIMUMAB 1 MG/KG ONCE IN 21 DAYS; 4 CYCLES ADMINISTERED
     Route: 042
     Dates: start: 20240913, end: 20241113
  3. OMEPRAZOLE [Concomitant]
     Active Substance: OMEPRAZOLE
     Indication: Product used for unknown indication
     Dosage: 1-0-0  ON AN EMPTY STOMACH
     Route: 048
  4. PREDNISONE [Concomitant]
     Active Substance: PREDNISONE
     Indication: Product used for unknown indication
     Dosage: 1-0-0
     Route: 048

REACTIONS (1)
  - Enterocolitis haemorrhagic [Recovering/Resolving]

NARRATIVE: CASE EVENT DATE: 20241212
